FAERS Safety Report 5381609-8 (Version None)
Quarter: 2007Q3

REPORT INFORMATION
  Report Type: 
  Country: None (occurrence: None)
  Receive Date: 20070709
  Receipt Date: 20070703
  Transmission Date: 20080115
  Serious: Yes (Life-Threatening, Hospitalization)
  Sender: FDA-Public Use
  Company Number: PHHO2007AU09376

PATIENT
  Age: 60 Year
  Sex: Male

DRUGS (3)
  1. TELBIVUDINE (LDT) [Suspect]
     Indication: HEPATITIS B
     Dosage: 600 MG, UNK
     Route: 048
     Dates: start: 20050928
  2. ZOLPIDEM TARTRATE [Suspect]
     Indication: INSOMNIA
  3. ALCOHOL [Suspect]

REACTIONS (3)
  - DEPRESSION [None]
  - OVERDOSE [None]
  - SUICIDE ATTEMPT [None]
